FAERS Safety Report 16241150 (Version 2)
Quarter: 2019Q2

REPORT INFORMATION
  Report Type: Spontaneous
  Country: US (occurrence: US)
  Receive Date: 20190425
  Receipt Date: 20190627
  Transmission Date: 20190711
  Serious: Yes (Other)
  Sender: FDA-Public Use
  Company Number: US-BIOGEN-2018BI00543279

PATIENT
  Sex: Female

DRUGS (2)
  1. TYSABRI [Suspect]
     Active Substance: NATALIZUMAB
     Indication: MULTIPLE SCLEROSIS
     Route: 050
     Dates: start: 20110415
  2. TYSABRI [Suspect]
     Active Substance: NATALIZUMAB
     Dates: start: 20080311, end: 20090112

REACTIONS (2)
  - Pre-eclampsia [Unknown]
  - Maternal exposure during pregnancy [Unknown]
